FAERS Safety Report 7850998-4 (Version None)
Quarter: 2011Q4

REPORT INFORMATION
  Report Type: 
  Country: None (occurrence: None)
  Receive Date: 20111026
  Receipt Date: 20111019
  Transmission Date: 20120403
  Serious: Yes (Other)
  Sender: FDA-Public Use
  Company Number: US-SANOFI-AVENTIS-2011SA069244

PATIENT
  Sex: Female
  Weight: 118 kg

DRUGS (4)
  1. LOVENOX [Suspect]
     Indication: PULMONARY EMBOLISM
     Route: 065
     Dates: start: 20111013
  2. COUMADIN [Concomitant]
  3. OTHER CHEMOTHERAPEUTICS [Concomitant]
     Dates: end: 20111011
  4. LOVENOX [Suspect]
     Route: 065
     Dates: start: 20111013

REACTIONS (3)
  - HYPOTENSION [None]
  - EPISTAXIS [None]
  - ASTHENIA [None]
